FAERS Safety Report 13701719 (Version 1)
Quarter: 2017Q2

REPORT INFORMATION
  Report Type: Spontaneous
  Country: FR (occurrence: FR)
  Receive Date: 20170629
  Receipt Date: 20170629
  Transmission Date: 20170830
  Serious: Yes (Hospitalization)
  Sender: FDA-Public Use
  Company Number: FR-JNJFOC-20170620679

PATIENT
  Age: 75 Year
  Sex: Male

DRUGS (13)
  1. ORACILLINE [Concomitant]
     Active Substance: PENICILLIN V
     Route: 065
     Dates: end: 20170609
  2. TRIMETHOPRIM SULFAMETHOXAZOLE [Concomitant]
     Active Substance: SULFAMETHOXAZOLE\TRIMETHOPRIM
     Route: 065
     Dates: end: 20170609
  3. ZOVIRAX [Concomitant]
     Active Substance: ACYCLOVIR
     Route: 065
     Dates: start: 20170610
  4. FUROSEMIDE. [Concomitant]
     Active Substance: FUROSEMIDE
     Route: 065
     Dates: start: 20170610
  5. IMBRUVICA [Suspect]
     Active Substance: IBRUTINIB
     Indication: CHRONIC LYMPHOCYTIC LEUKAEMIA
     Route: 048
     Dates: start: 20170615
  6. IMBRUVICA [Suspect]
     Active Substance: IBRUTINIB
     Indication: CHRONIC LYMPHOCYTIC LEUKAEMIA
     Route: 048
     Dates: start: 201606, end: 20170608
  7. RAMIPRIL. [Concomitant]
     Active Substance: RAMIPRIL
     Route: 065
     Dates: start: 20170610
  8. ZOVIRAX [Concomitant]
     Active Substance: ACYCLOVIR
     Route: 065
     Dates: end: 20170609
  9. FUROSEMIDE. [Concomitant]
     Active Substance: FUROSEMIDE
     Route: 065
     Dates: end: 20170609
  10. TRIMETHOPRIM SULFAMETHOXAZOLE [Concomitant]
     Active Substance: SULFAMETHOXAZOLE\TRIMETHOPRIM
     Route: 065
     Dates: start: 20170610
  11. ORACILLINE [Concomitant]
     Active Substance: PENICILLIN V
     Route: 065
     Dates: start: 20170610
  12. RAMIPRIL. [Concomitant]
     Active Substance: RAMIPRIL
     Route: 065
     Dates: end: 20170609
  13. KALEORID [Concomitant]
     Active Substance: POTASSIUM CHLORIDE
     Route: 065
     Dates: end: 20170609

REACTIONS (1)
  - Pancreatitis [Recovering/Resolving]

NARRATIVE: CASE EVENT DATE: 20170608
